FAERS Safety Report 11006740 (Version 1)
Quarter: 2015Q2

REPORT INFORMATION
  Report Type: Spontaneous
  Country: US (occurrence: US)
  Receive Date: 20150409
  Receipt Date: 20150409
  Transmission Date: 20150821
  Serious: No
  Sender: FDA-Public Use
  Company Number: US-ALLERGAN-1424189US

PATIENT
  Sex: Female

DRUGS (1)
  1. LATISSE [Suspect]
     Active Substance: BIMATOPROST
     Indication: GROWTH OF EYELASHES
     Route: 061

REACTIONS (8)
  - Hypoaesthesia [Not Recovered/Not Resolved]
  - Facial paresis [Unknown]
  - Inappropriate schedule of drug administration [Unknown]
  - Lacrimation increased [Not Recovered/Not Resolved]
  - Eyelid ptosis [Unknown]
  - Eye swelling [Not Recovered/Not Resolved]
  - Facial paresis [Recovered/Resolved]
  - Lacrimation increased [Recovered/Resolved]
